FAERS Safety Report 13674190 (Version 1)
Quarter: 2017Q2

REPORT INFORMATION
  Report Type: Spontaneous
  Country: AU (occurrence: AU)
  Receive Date: 20170621
  Receipt Date: 20170621
  Transmission Date: 20170830
  Serious: Yes (Hospitalization, Other)
  Sender: FDA-Public Use
  Company Number: AU-JNJFOC-20170615946

PATIENT
  Age: 78 Year
  Sex: Male

DRUGS (3)
  1. ELOCON [Concomitant]
     Active Substance: MOMETASONE FUROATE
     Route: 065
  2. IBRUTINIB [Suspect]
     Active Substance: IBRUTINIB
     Indication: LYMPHOCYTIC LYMPHOMA
     Route: 048
     Dates: start: 2015
  3. MICARDIS [Concomitant]
     Active Substance: TELMISARTAN
     Route: 065

REACTIONS (7)
  - Palpitations [Recovering/Resolving]
  - Chest pain [Recovering/Resolving]
  - Cerebral infarction [Recovering/Resolving]
  - Intracranial haematoma [Recovering/Resolving]
  - Hypertension [Recovering/Resolving]
  - Lymphocytosis [Recovering/Resolving]
  - Rash [Not Recovered/Not Resolved]

NARRATIVE: CASE EVENT DATE: 201602
